FAERS Safety Report 8269074-4 (Version None)
Quarter: 2012Q2

REPORT INFORMATION
  Report Type: 
  Country: None (occurrence: None)
  Receive Date: 20120409
  Receipt Date: 20120404
  Transmission Date: 20120825
  Serious: Yes (Other)
  Sender: FDA-Public Use
  Company Number: AU-ABBOTT-12P-008-0921796-00

PATIENT
  Age: 60 Year
  Sex: Male

DRUGS (3)
  1. PERINDOPRIL ERBUMINE [Concomitant]
     Indication: HYPERTENSION
  2. HUMIRA [Suspect]
     Indication: PSORIASIS
     Dates: start: 20091101, end: 20110401
  3. EFFEXOR [Concomitant]
     Indication: DEPRESSION

REACTIONS (4)
  - IGA NEPHROPATHY [None]
  - SYSTEMIC LUPUS ERYTHEMATOSUS [None]
  - HYPERTENSION [None]
  - RENAL FAILURE ACUTE [None]
